FAERS Safety Report 5531590-3 (Version None)
Quarter: 2007Q4

REPORT INFORMATION
  Report Type: 
  Country: None (occurrence: None)
  Receive Date: 20071203
  Receipt Date: 20071126
  Transmission Date: 20080405
  Serious: Yes (Disabling)
  Sender: FDA-Public Use
  Company Number: PHNR2007AU01898

PATIENT
  Sex: Male

DRUGS (6)
  1. NEORAL [Suspect]
     Indication: NON-HODGKIN'S LYMPHOMA
     Dosage: 250 MG, QD
     Route: 048
     Dates: start: 20070905
  2. NEORAL [Suspect]
     Dosage: 150 MG, QD
     Route: 048
     Dates: end: 20070919
  3. NEORAL [Suspect]
     Dosage: 150MG DAILY
     Route: 048
  4. NEORAL [Suspect]
     Dosage: 100 MG, QD
     Route: 048
  5. PREDNISOLONE [Concomitant]
     Dosage: 10MG DAILY
  6. ACETAMINOPHEN W/ CODEINE [Concomitant]

REACTIONS (3)
  - HYPOAESTHESIA [None]
  - PAIN IN EXTREMITY [None]
  - PARAESTHESIA [None]
